FAERS Safety Report 16264427 (Version 1)
Quarter: 2019Q2

REPORT INFORMATION
  Report Type: Spontaneous
  Country: US (occurrence: US)
  Receive Date: 20190502
  Receipt Date: 20190502
  Transmission Date: 20190711
  Serious: No
  Sender: FDA-Public Use
  Company Number: US-PFIZER INC-2019176925

PATIENT
  Sex: Female

DRUGS (5)
  1. XANAX [Suspect]
     Active Substance: ALPRAZOLAM
     Dosage: 0.5 MG, EVERY 4 HRS (0.5MG Q4HOUR)
  2. XANAX [Suspect]
     Active Substance: ALPRAZOLAM
     Dosage: 10.5 MG, UNK
  3. XANAX [Suspect]
     Active Substance: ALPRAZOLAM
     Dosage: 1 MG, UNK
  4. XANAX [Suspect]
     Active Substance: ALPRAZOLAM
     Dosage: 1.5 MG, DAILY
  5. XANAX [Suspect]
     Active Substance: ALPRAZOLAM
     Dosage: 2.5 MG, UNK

REACTIONS (8)
  - Withdrawal syndrome [Unknown]
  - Drug ineffective [Unknown]
  - Anxiety [Unknown]
  - Feeling abnormal [Unknown]
  - Agitation [Unknown]
  - Drug tolerance [Unknown]
  - Tremor [Unknown]
  - Irritability [Unknown]
